FAERS Safety Report 20717759 (Version 1)
Quarter: 2022Q2

REPORT INFORMATION
  Report Type: Spontaneous
  Country: CN (occurrence: CN)
  Receive Date: 20220417
  Receipt Date: 20220417
  Transmission Date: 20220720
  Serious: Yes (Other)
  Sender: FDA-Public Use
  Company Number: CN-BAXTER-2022BAX008308

PATIENT
  Age: 59 Year
  Sex: Female
  Weight: 75 kg

DRUGS (3)
  1. IFOSFAMIDE [Suspect]
     Active Substance: IFOSFAMIDE
     Indication: Endometrial cancer
     Route: 041
     Dates: start: 20220311, end: 20220313
  2. DEXTROSE [Suspect]
     Active Substance: DEXTROSE
     Indication: Medication dilution
     Dosage: EPIRUBICIN HYDROCHLORIDE FOR INJECTION (80 MG) + GLUCOSE INJECTION (250ML)
     Route: 041
     Dates: start: 20220311, end: 20220313
  3. EPIRUBICIN HYDROCHLORIDE [Suspect]
     Active Substance: EPIRUBICIN HYDROCHLORIDE
     Indication: Endometrial cancer
     Dosage: EPIRUBICIN HYDROCHLORIDE FOR INJECTION (80 MG) + GLUCOSE INJECTION (250ML)
     Route: 041
     Dates: start: 20220311, end: 20220313

REACTIONS (1)
  - White blood cell count decreased [Recovering/Resolving]

NARRATIVE: CASE EVENT DATE: 20220318
